FAERS Safety Report 4702976-1 (Version None)
Quarter: 2005Q2

REPORT INFORMATION
  Report Type: 
  Country: None (occurrence: None)
  Receive Date: 20050629
  Receipt Date: 20050617
  Transmission Date: 20051028
  Serious: Yes (Life-Threatening)
  Sender: FDA-Public Use
  Company Number: DE-ROCHE-408151

PATIENT
  Age: 40 Year
  Sex: Male
  Weight: 95 kg

DRUGS (9)
  1. PEG-INTERFERON ALFA 2A (RO 25-8310) [Suspect]
     Dosage: 180 MCG/WEEK.
     Route: 058
     Dates: start: 20050218, end: 20050611
  2. REBETOL [Suspect]
     Route: 048
     Dates: start: 20050218, end: 20050611
  3. AMANTADINE HCL [Concomitant]
     Route: 048
     Dates: start: 20050218, end: 20050611
  4. PARACETAMOL [Concomitant]
     Route: 048
     Dates: start: 20050218, end: 20050611
  5. DELIX 5 [Concomitant]
  6. ASS 100 [Concomitant]
  7. METOPROLOL [Concomitant]
     Dosage: REPORTED AS METOPROLOL 05.
  8. SORTIS [Concomitant]
     Dosage: REPORTED AS SORTIS 10.
  9. NEXIUM [Concomitant]
     Dosage: REPORTED AS NEXIUM 40.

REACTIONS (3)
  - ANGINA PECTORIS [None]
  - HAEMOGLOBIN DECREASED [None]
  - NON-HODGKIN'S LYMPHOMA [None]
